FAERS Safety Report 19479061 (Version 1)
Quarter: 2021Q3

REPORT INFORMATION
  Report Type: Report from Study
  Country: DE (occurrence: DE)
  Receive Date: 20210701
  Receipt Date: 20210701
  Transmission Date: 20211014
  Serious: Yes (Hospitalization, Other)
  Sender: FDA-Public Use
  Company Number: DE-AMGEN-DEUNI2021098754

PATIENT
  Age: 72 Year
  Sex: Female

DRUGS (1)
  1. ADALIMUMAB [Suspect]
     Active Substance: ADALIMUMAB
     Indication: RHEUMATOID ARTHRITIS
     Dosage: 40 MILLIGRAM, Q2WK
     Route: 058
     Dates: start: 20200415

REACTIONS (3)
  - Ovarian adenoma [Recovered/Resolved]
  - Vulval abscess [Recovered/Resolved]
  - Mucinous breast carcinoma [Recovered/Resolved]

NARRATIVE: CASE EVENT DATE: 20200825
